FAERS Safety Report 5450636-4 (Version None)
Quarter: 2007Q3

REPORT INFORMATION
  Report Type: 
  Country: None (occurrence: None)
  Receive Date: 20070910
  Receipt Date: 20070829
  Transmission Date: 20080115
  Serious: Yes (Death, Life-Threatening)
  Sender: FDA-Public Use
  Company Number: 20074004

PATIENT
  Sex: Female

DRUGS (1)
  1. LIORESAL [Suspect]
     Indication: MUSCLE SPASTICITY
     Dosage: 152 MCG, DAILY, INTRATHECAL
     Route: 037

REACTIONS (4)
  - HYPOTONIA [None]
  - MUSCLE SPASTICITY [None]
  - RESPIRATORY ARREST [None]
  - SCREAMING [None]
